FAERS Safety Report 7951503-4 (Version None)
Quarter: 2011Q4

REPORT INFORMATION
  Report Type: 
  Country: None (occurrence: None)
  Receive Date: 20111201
  Receipt Date: 20111118
  Transmission Date: 20120403
  Serious: Yes (Hospitalization)
  Sender: FDA-Public Use
  Company Number: US-BAYER-2011-077821

PATIENT
  Age: 29 Year
  Sex: Female
  Weight: 136.5 kg

DRUGS (5)
  1. YASMIN [Suspect]
     Dosage: UNK
     Dates: start: 20070101, end: 20070301
  2. LIPITOR [Concomitant]
  3. UNKNOWN DRUG [Concomitant]
     Indication: HYPERTENSION
  4. DIURETICS [Concomitant]
     Indication: DIURETIC THERAPY
  5. PREVACID [Concomitant]
     Indication: GASTROOESOPHAGEAL REFLUX DISEASE
     Dosage: UNK
     Dates: start: 20020101, end: 20080101

REACTIONS (4)
  - EMOTIONAL DISTRESS [None]
  - DEEP VEIN THROMBOSIS [None]
  - INJURY [None]
  - PULMONARY EMBOLISM [None]
